FAERS Safety Report 5106327-2 (Version None)
Quarter: 2006Q3

REPORT INFORMATION
  Report Type: 
  Country: None (occurrence: None)
  Receive Date: 20060912
  Receipt Date: 20060830
  Transmission Date: 20061208
  Serious: Yes (Other)
  Sender: FDA-Public Use
  Company Number: 2006106398

PATIENT
  Age: 59 Year
  Sex: Female

DRUGS (3)
  1. ZARONTIN [Suspect]
     Indication: EPILEPSY
     Dosage: UNK (250 MG, UNKNOWN); ORAL
     Route: 048
  2. PHENOBARBITAL TAB [Suspect]
     Indication: EPILEPSY
  3. PRIMIDONE [Suspect]
     Indication: EPILEPSY

REACTIONS (4)
  - BREAST CANCER FEMALE [None]
  - FALL [None]
  - FRACTURE [None]
  - OSTEOPOROSIS [None]
